FAERS Safety Report 5615559-6 (Version None)
Quarter: 2008Q1

REPORT INFORMATION
  Report Type: 
  Country: None (occurrence: None)
  Receive Date: 20080204
  Receipt Date: 20080204
  Transmission Date: 20080703
  Serious: No
  Sender: FDA-Public Use
  Company Number: None

PATIENT
  Age: 55 Year
  Sex: Male

DRUGS (1)
  1. TIMOLOL GEL FORMING SOLN 0.5% [Suspect]
     Dosage: 1 DROP EACH EYE AT BEDTIME
     Dates: start: 20070822

REACTIONS (1)
  - CONJUNCTIVITIS [None]
